FAERS Safety Report 15459890 (Version 1)
Quarter: 2018Q4

REPORT INFORMATION
  Report Type: Spontaneous
  Country: US (occurrence: US)
  Receive Date: 20181003
  Receipt Date: 20181003
  Transmission Date: 20190204
  Serious: No
  Sender: FDA-Public Use
  Company Number: US-BAYER-2018-182578

PATIENT
  Age: 18 Month
  Sex: Female
  Weight: 11 kg

DRUGS (1)
  1. CLARITIN [Suspect]
     Active Substance: LORATADINE
     Dosage: DRANK HALF THE BOTTLE
     Route: 065
     Dates: start: 20180928, end: 20180928

REACTIONS (2)
  - Incorrect dosage administered [Recovered/Resolved]
  - Failure of child resistant mechanism for pharmaceutical product [None]

NARRATIVE: CASE EVENT DATE: 20180928
